FAERS Safety Report 6680044-X (Version None)
Quarter: 2010Q2

REPORT INFORMATION
  Report Type: 
  Country: None (occurrence: None)
  Receive Date: 20100409
  Receipt Date: 20100329
  Transmission Date: 20101027
  Serious: Yes (Hospitalization, Other)
  Sender: FDA-Public Use
  Company Number: US-1181399

PATIENT
  Sex: Female

DRUGS (7)
  1. TRAVATAN [Suspect]
     Indication: GLAUCOMA
     Dosage: OPHTHALMIC
     Route: 047
  2. COSOPT [Concomitant]
  3. TRAMADOL HCL [Concomitant]
  4. ZANTAC [Concomitant]
  5. NITROGLYCERIN [Concomitant]
  6. LOMOTIL [Concomitant]
  7. PHENERGAN [Concomitant]

REACTIONS (8)
  - ANXIETY [None]
  - BLOOD PRESSURE INCREASED [None]
  - CHEST PAIN [None]
  - DEPRESSION [None]
  - EYE IRRITATION [None]
  - GASTRITIS [None]
  - OCULAR HYPERAEMIA [None]
  - URINARY TRACT INFECTION [None]
